FAERS Safety Report 16236645 (Version 1)
Quarter: 2019Q2

REPORT INFORMATION
  Report Type: Spontaneous
  Country: US (occurrence: US)
  Receive Date: 20190425
  Receipt Date: 20190425
  Transmission Date: 20190711
  Serious: Yes (Other)
  Sender: FDA-Public Use
  Company Number: US-ASTRAZENECA-2019SE62695

PATIENT
  Age: 60 Year
  Sex: Male

DRUGS (1)
  1. PRILOSEC [Suspect]
     Active Substance: OMEPRAZOLE MAGNESIUM
     Route: 048

REACTIONS (6)
  - Dehydration [Recovering/Resolving]
  - Off label use [Unknown]
  - Incorrect product administration duration [Unknown]
  - Renal failure [Recovering/Resolving]
  - Muscle spasms [Recovering/Resolving]
  - Haematology test [Recovering/Resolving]

NARRATIVE: CASE EVENT DATE: 201904
